FAERS Safety Report 11233977 (Version 1)
Quarter: 2015Q3

REPORT INFORMATION
  Report Type: Spontaneous
  Country: GB (occurrence: GB)
  Receive Date: 20150702
  Receipt Date: 20150702
  Transmission Date: 20151125
  Serious: Yes (Life-Threatening, Hospitalization)
  Sender: FDA-Public Use
  Company Number: GB-COREPHARMA LLC-2015COR00128

PATIENT
  Age: 57 Year
  Sex: Female

DRUGS (2)
  1. CITALOPRAM [Suspect]
     Active Substance: CITALOPRAM HYDROBROMIDE
     Indication: ANXIETY
  2. CITALOPRAM [Suspect]
     Active Substance: CITALOPRAM HYDROBROMIDE
     Indication: DEPRESSED MOOD
     Dosage: 20 MG, UNK

REACTIONS (4)
  - Female sexual arousal disorder [Recovered/Resolved]
  - Suicide attempt [Recovered/Resolved]
  - Depression [Recovered/Resolved]
  - Withdrawal syndrome [Recovered/Resolved]
